FAERS Safety Report 5533465-2 (Version None)
Quarter: 2007Q4

REPORT INFORMATION
  Report Type: 
  Country: None (occurrence: None)
  Receive Date: 20071204
  Receipt Date: 20071126
  Transmission Date: 20080405
  Serious: Yes (Other)
  Sender: FDA-Public Use
  Company Number: US-ELI_LILLY_AND_COMPANY-US200711004500

PATIENT
  Sex: Female

DRUGS (4)
  1. FORTEO [Suspect]
     Indication: OSTEOPOROSIS
     Dosage: UNK, UNK
     Dates: start: 20071114
  2. EVISTA [Suspect]
     Indication: OSTEOPOROSIS
     Dates: start: 20070801
  3. XANAX [Concomitant]
  4. NORCO [Concomitant]
     Indication: PAIN

REACTIONS (2)
  - PAIN [None]
  - SUICIDAL IDEATION [None]
